FAERS Safety Report 16185898 (Version 1)
Quarter: 2019Q2

REPORT INFORMATION
  Report Type: Spontaneous
  Country: US (occurrence: US)
  Receive Date: 20190411
  Receipt Date: 20190411
  Transmission Date: 20190711
  Serious: Yes (Hospitalization)
  Sender: FDA-Public Use
  Company Number: US-BAYER-2019-070032

PATIENT
  Age: 64 Year
  Sex: Female

DRUGS (2)
  1. ACETYLSALICYLIC ACID (PAIN AND FEVER) [Suspect]
     Active Substance: ASPIRIN
     Dosage: UNK
  2. PARACETAMOL [Suspect]
     Active Substance: ACETAMINOPHEN
     Dosage: UNK

REACTIONS (1)
  - Aspirin-exacerbated respiratory disease [None]
